FAERS Safety Report 5322214-9 (Version None)
Quarter: 2007Q2

REPORT INFORMATION
  Report Type: 
  Country: None (occurrence: None)
  Receive Date: 20070511
  Receipt Date: 20070501
  Transmission Date: 20071010
  Serious: Yes (Hospitalization)
  Sender: FDA-Public Use
  Company Number: JP-ROCHE-495564

PATIENT
  Age: 49 Year
  Sex: Male

DRUGS (7)
  1. TAMIFLU [Suspect]
     Indication: INFLUENZA
     Route: 048
     Dates: start: 20070407, end: 20070407
  2. BAYNAS [Suspect]
     Indication: DRUG USE FOR UNKNOWN INDICATION
     Route: 048
     Dates: start: 20070407, end: 20070407
  3. SURGAM [Suspect]
     Indication: DRUG USE FOR UNKNOWN INDICATION
     Route: 048
     Dates: start: 20070407, end: 20070407
  4. HUSCODE [Suspect]
     Indication: DRUG USE FOR UNKNOWN INDICATION
     Route: 048
     Dates: start: 20070407, end: 20070407
  5. RESPLEN [Suspect]
     Indication: DRUG USE FOR UNKNOWN INDICATION
     Route: 048
     Dates: start: 20070407, end: 20070407
  6. CALONAL [Suspect]
     Indication: DRUG USE FOR UNKNOWN INDICATION
     Route: 048
     Dates: start: 20070407, end: 20070407
  7. CLARITHROMYCIN [Concomitant]
     Route: 048
     Dates: start: 20070407, end: 20070407

REACTIONS (3)
  - OCULAR HYPERAEMIA [None]
  - RASH [None]
  - SHOCK [None]
